FAERS Safety Report 5334914-5 (Version None)
Quarter: 2007Q2

REPORT INFORMATION
  Report Type: 
  Country: None (occurrence: None)
  Receive Date: 20070525
  Receipt Date: 20070514
  Transmission Date: 20071010
  Serious: Yes (Other)
  Sender: FDA-Public Use
  Company Number: US-ROCHE-473731

PATIENT
  Age: 48 Year
  Sex: Female

DRUGS (10)
  1. PEGASYS [Suspect]
     Dosage: INDICATION REPORTED AS CHC.
     Route: 058
     Dates: start: 20060922, end: 20061006
  2. PEGASYS [Suspect]
     Route: 058
     Dates: start: 20061103
  3. PEGASYS [Suspect]
     Route: 058
     Dates: start: 20061208, end: 20070326
  4. RIBAVIRIN [Suspect]
     Dosage: INDICATION REPORTED AS CHC.
     Route: 048
     Dates: start: 20060922, end: 20061006
  5. RIBAVIRIN [Suspect]
     Route: 048
     Dates: start: 20061103
  6. RIBAVIRIN [Suspect]
     Route: 048
     Dates: start: 20061208, end: 20070326
  7. CYMBALTA [Concomitant]
     Indication: ANTIDEPRESSANT THERAPY
     Route: 048
     Dates: start: 20060922
  8. VICODIN [Concomitant]
     Route: 048
  9. FOLIC ACID [Concomitant]
  10. BOTOX [Concomitant]
     Dosage: FREQUENCY REPORTED AS EVERY THREE MONTHS.

REACTIONS (24)
  - ABASIA [None]
  - ANAEMIA [None]
  - ANXIETY [None]
  - ASTHENIA [None]
  - BONE DENSITY DECREASED [None]
  - CHILLS [None]
  - CONTUSION [None]
  - DELIRIUM [None]
  - DEPRESSIVE SYMPTOM [None]
  - DRY MOUTH [None]
  - FALL [None]
  - FATIGUE [None]
  - HAEMOGLOBIN DECREASED [None]
  - HYPERSOMNIA [None]
  - INTESTINAL OBSTRUCTION [None]
  - LABORATORY TEST ABNORMAL [None]
  - MUSCLE SPASMS [None]
  - MUSCULOSKELETAL STIFFNESS [None]
  - PAIN [None]
  - RHEUMATOID NODULE [None]
  - STOMATITIS [None]
  - UNEVALUABLE EVENT [None]
  - WEIGHT DECREASED [None]
  - WHITE BLOOD CELL COUNT DECREASED [None]
